FAERS Safety Report 7898365-1 (Version None)
Quarter: 2011Q4

REPORT INFORMATION
  Report Type: 
  Country: None (occurrence: None)
  Receive Date: 20111107
  Receipt Date: 20111101
  Transmission Date: 20120403
  Serious: Yes (Hospitalization, Congenital Anomaly, Other)
  Sender: FDA-Public Use
  Company Number: US-PFIZER INC-2011151208

PATIENT
  Sex: Male
  Weight: 4 kg

DRUGS (1)
  1. ZOLOFT [Suspect]
     Dosage: UNK

REACTIONS (36)
  - LIMB REDUCTION DEFECT [None]
  - DEXTROCARDIA [None]
  - RECTAL ATRESIA [None]
  - FOETAL DISTRESS SYNDROME [None]
  - ARNOLD-CHIARI MALFORMATION [None]
  - TRICUSPID VALVE INCOMPETENCE [None]
  - VESICOURETERIC REFLUX [None]
  - DEEP VEIN THROMBOSIS [None]
  - URINARY TRACT INFECTION [None]
  - CONSTIPATION [None]
  - ERYTHEMA [None]
  - HEAD CIRCUMFERENCE ABNORMAL [None]
  - NEUROGENIC BLADDER [None]
  - MENINGOMYELOCELE [None]
  - BRADYCARDIA FOETAL [None]
  - VIRAL RASH [None]
  - JOINT RANGE OF MOTION DECREASED [None]
  - UPPER RESPIRATORY TRACT INFECTION [None]
  - DERMATITIS DIAPER [None]
  - SPINA BIFIDA [None]
  - HYPOSPADIAS [None]
  - HYDRONEPHROSIS [None]
  - VIRAL INFECTION [None]
  - FOETAL EXPOSURE DURING PREGNANCY [None]
  - ANAL ATRESIA [None]
  - RECTOURETHRAL FISTULA [None]
  - DEFORMITY THORAX [None]
  - ATELECTASIS NEONATAL [None]
  - ATRIAL SEPTAL DEFECT [None]
  - CONGENITAL RENAL DISORDER [None]
  - TORTICOLLIS [None]
  - FEBRILE INFECTION [None]
  - HYDROCEPHALUS [None]
  - CONGENITAL SCOLIOSIS [None]
  - HAEMANGIOMA [None]
  - PULMONARY VALVE INCOMPETENCE [None]
